FAERS Safety Report 11315153 (Version 23)
Quarter: 2017Q1

REPORT INFORMATION
  Report Type: Report from Study
  Country: BR (occurrence: BR)
  Receive Date: 20150727
  Receipt Date: 20170201
  Transmission Date: 20170428
  Serious: Yes (Hospitalization, Other)
  Sender: FDA-Public Use
  Company Number: PHHY2015BR090001

PATIENT
  Sex: Female
  Weight: 53 kg

DRUGS (7)
  1. EXJADE [Suspect]
     Active Substance: DEFERASIROX
     Indication: SICKLE CELL ANAEMIA
     Dosage: UNK
     Route: 065
  2. DIPYRONE [Concomitant]
     Active Substance: DIPYRONE
     Indication: SICKLE CELL ANAEMIA
     Dosage: 2 DF, SOMETIMES
     Route: 048
  3. PROFENID [Concomitant]
     Active Substance: KETOPROFEN
     Indication: SICKLE CELL ANAEMIA
     Dosage: 1 DF, SOMETIMES
     Route: 048
  4. EXJADE [Suspect]
     Active Substance: DEFERASIROX
     Dosage: 1 DF, QD
     Route: 048
  5. FOLIC ACID. [Concomitant]
     Active Substance: FOLIC ACID
     Indication: SICKLE CELL ANAEMIA
     Dosage: 1 DF, QD, AFTER LUNCH
     Route: 048
  6. EXJADE [Suspect]
     Active Substance: DEFERASIROX
     Dosage: 10 MG/KG, QD (1 DF OF 500 MG IN MORNING)
     Route: 048
     Dates: start: 2013
  7. EXJADE [Suspect]
     Active Substance: DEFERASIROX
     Dosage: 5 MG/KG, QD (1 TABLET OF 250 MG DAILY IN MORNING)
     Route: 048

REACTIONS (71)
  - Crying [Recovering/Resolving]
  - Iron overload [Recovering/Resolving]
  - Asthenia [Recovering/Resolving]
  - Nausea [Recovering/Resolving]
  - Faeces soft [Unknown]
  - Hyperchlorhydria [Unknown]
  - Fatigue [Recovering/Resolving]
  - Drug ineffective [Unknown]
  - Fear [Recovering/Resolving]
  - Pain [Unknown]
  - Abdominal pain upper [Recovering/Resolving]
  - Dizziness [Recovering/Resolving]
  - Bone pain [Unknown]
  - Arthralgia [Unknown]
  - Vein disorder [Unknown]
  - Lung disorder [Recovering/Resolving]
  - Oedema peripheral [Recovering/Resolving]
  - Joint swelling [Recovering/Resolving]
  - Urinary tract infection [Recovered/Resolved]
  - Malaise [Recovering/Resolving]
  - Necrosis [Unknown]
  - Lymphoma [Unknown]
  - Liver injury [Unknown]
  - Pain in extremity [Recovering/Resolving]
  - Angina pectoris [Not Recovered/Not Resolved]
  - Dyspnoea [Recovering/Resolving]
  - Vision blurred [Unknown]
  - Movement disorder [Unknown]
  - Spinal disorder [Unknown]
  - Chest pain [Unknown]
  - Blood glucose decreased [Unknown]
  - Serum ferritin increased [Unknown]
  - Productive cough [Unknown]
  - Weight decreased [Unknown]
  - Syncope [Recovering/Resolving]
  - Cardiovascular disorder [Recovering/Resolving]
  - Abdominal distension [Recovering/Resolving]
  - Retching [Recovered/Resolved]
  - Feeling abnormal [Unknown]
  - Weight increased [Unknown]
  - Procedural pain [Unknown]
  - Abdominal pain [Unknown]
  - Influenza [Recovering/Resolving]
  - Pruritus [Recovering/Resolving]
  - Screaming [Recovering/Resolving]
  - Blood iron decreased [Recovering/Resolving]
  - Mass [Unknown]
  - Bedridden [Unknown]
  - Blood glucose increased [Recovering/Resolving]
  - Varicose vein [Recovered/Resolved]
  - Influenza [Recovered/Resolved]
  - Oropharyngeal pain [Recovering/Resolving]
  - Cough [Recovering/Resolving]
  - Dysentery [Recovering/Resolving]
  - Abdominal pain [Recovered/Resolved]
  - Hyperhidrosis [Recovering/Resolving]
  - Malaise [Recovered/Resolved]
  - Insomnia [Unknown]
  - Urinary tract infection [Recovered/Resolved]
  - Swelling [Recovering/Resolving]
  - Sickle cell anaemia with crisis [Recovering/Resolving]
  - Peripheral swelling [Unknown]
  - Vascular pain [Unknown]
  - Renal injury [Unknown]
  - Wheezing [Unknown]
  - Catarrh [Unknown]
  - Headache [Unknown]
  - Gait disturbance [Recovered/Resolved]
  - Haemoglobin decreased [Unknown]
  - Blood uric acid increased [Recovering/Resolving]
  - Vomiting [Unknown]

NARRATIVE: CASE EVENT DATE: 2013
